FAERS Safety Report 17806368 (Version 1)
Quarter: 2020Q2

REPORT INFORMATION
  Report Type: Spontaneous
  Country: US (occurrence: US)
  Receive Date: 20200519
  Receipt Date: 20200519
  Transmission Date: 20200714
  Serious: Yes (Hospitalization, Disabling)
  Sender: FDA-Public Use
  Company Number: None

PATIENT
  Age: 37 Year
  Sex: Male
  Weight: 65.77 kg

DRUGS (1)
  1. RITALIN [Suspect]
     Active Substance: METHYLPHENIDATE HYDROCHLORIDE
     Indication: ATTENTION DEFICIT HYPERACTIVITY DISORDER
     Dosage: ?          QUANTITY:3 PILLS;?
     Route: 048
     Dates: start: 19890101, end: 19971231

REACTIONS (7)
  - Hallucination [None]
  - Fall [None]
  - Disturbance in attention [None]
  - Contusion [None]
  - Imprisonment [None]
  - Clumsiness [None]
  - Limb injury [None]
